FAERS Safety Report 25355197 (Version 3)
Quarter: 2025Q4

REPORT INFORMATION
  Report Type: Spontaneous
  Country: US (occurrence: US)
  Receive Date: 20250524
  Receipt Date: 20251217
  Transmission Date: 20260117
  Serious: No
  Sender: ABBVIE
  Company Number: US-ABBVIE-6298597

PATIENT
  Sex: Male

DRUGS (1)
  1. VRAYLAR [Suspect]
     Active Substance: CARIPRAZINE
     Indication: Product used for unknown indication
     Dosage: 1.5 MILLIGRAM CAP
     Route: 048

REACTIONS (3)
  - Bruxism [Not Recovered/Not Resolved]
  - Headache [Not Recovered/Not Resolved]
  - Tremor [Not Recovered/Not Resolved]
